FAERS Safety Report 5939615-8 (Version None)
Quarter: 2008Q4

REPORT INFORMATION
  Report Type: 
  Country: None (occurrence: None)
  Receive Date: 20081030
  Receipt Date: 20081030
  Transmission Date: 20090506
  Serious: Yes (Other)
  Sender: FDA-Public Use
  Company Number: None

PATIENT
  Sex: Female
  Weight: 63.5036 kg

DRUGS (1)
  1. ABILIFY [Suspect]
     Indication: BIPOLAR DISORDER
     Dosage: ONE TABLET DAILY PO
     Route: 048
     Dates: start: 20080813, end: 20080813

REACTIONS (7)
  - AMNESIA [None]
  - ANXIETY [None]
  - BRUXISM [None]
  - FALL [None]
  - HEADACHE [None]
  - LOSS OF CONSCIOUSNESS [None]
  - THINKING ABNORMAL [None]
